FAERS Safety Report 16952039 (Version 9)
Quarter: 2020Q2

REPORT INFORMATION
  Report Type: Report from Study
  Country: FR (occurrence: FR)
  Receive Date: 20191023
  Receipt Date: 20200505
  Transmission Date: 20200713
  Serious: Yes (Hospitalization, Other)
  Sender: FDA-Public Use
  Company Number: FR-ROCHE-2445444

PATIENT
  Age: 49 Year
  Sex: Female
  Weight: 68 kg

DRUGS (4)
  1. PACLITAXEL. [Suspect]
     Active Substance: PACLITAXEL
     Indication: TRIPLE NEGATIVE BREAST CANCER
     Dosage: FOR 12 WEEKS (AS PER PROTOCOL).?MOST RECENT DOSE (102 MG) OF PACLITAXEL PRIOR TO SAE ONSET WAS GIVE
     Route: 042
     Dates: start: 20190715
  2. DOXORUBICIN [Suspect]
     Active Substance: DOXORUBICIN
     Indication: TRIPLE NEGATIVE BREAST CANCER
     Dosage: FOR A TOTAL OF 4 DOSES (AS PER PROTOCOL). MOST RECENT DOSE ON 02/DEC/2019 (75 MG) PRIOR TO AE/SAE
     Route: 042
     Dates: start: 20191007
  3. ATEZOLIZUMAB. [Suspect]
     Active Substance: ATEZOLIZUMAB
     Indication: TRIPLE NEGATIVE BREAST CANCER
     Dosage: MOST RECENT DOSE (840 MG) OF ATEZOLIZUMAB PRIOR TO SAE ONSET WAS GIVEN ON 07/OCT/2019 AND 02/DEC/201
     Route: 042
     Dates: start: 20190715
  4. CYCLOPHOSPHAMIDE. [Suspect]
     Active Substance: CYCLOPHOSPHAMIDE
     Indication: TRIPLE NEGATIVE BREAST CANCER
     Dosage: FOR 4 DOSES (AS PER PROTOCOL) MOST RECENT DOSE ON 02/DEC/2019 (750 MG) PRIOR TO AE/SAE
     Route: 042
     Dates: start: 20191007

REACTIONS (2)
  - Febrile neutropenia [Recovered/Resolved]
  - Febrile neutropenia [Recovered/Resolved]

NARRATIVE: CASE EVENT DATE: 20191014
